FAERS Safety Report 6825538-9 (Version None)
Quarter: 2010Q3

REPORT INFORMATION
  Report Type: 
  Country: None (occurrence: None)
  Receive Date: 20100708
  Receipt Date: 20080225
  Transmission Date: 20110219
  Serious: No
  Sender: FDA-Public Use
  Company Number: US-PFIZER INC-2006095993

PATIENT
  Sex: Female
  Weight: 65.77 kg

DRUGS (9)
  1. CHANTIX [Suspect]
     Indication: SMOKING CESSATION THERAPY
     Dates: start: 20060701
  2. IRON [Concomitant]
     Route: 065
  3. CALCIUM CARBONATE [Concomitant]
  4. VITAMIN D [Concomitant]
     Route: 065
  5. PRILOSEC [Concomitant]
     Route: 065
  6. STOOL SOFTENER [Concomitant]
     Route: 065
  7. PHENOBARBITAL [Concomitant]
     Route: 065
  8. CARDIOVASCULAR SYSTEM DRUGS [Concomitant]
  9. VITAMIN C [Concomitant]

REACTIONS (4)
  - CONSTIPATION [None]
  - INSOMNIA [None]
  - NICOTINE DEPENDENCE [None]
  - SLEEP DISORDER [None]
